FAERS Safety Report 9920362 (Version 1)
Quarter: 2014Q1

REPORT INFORMATION
  Report Type: Spontaneous
  Country: US (occurrence: US)
  Receive Date: 20140224
  Receipt Date: 20140224
  Transmission Date: 20141002
  Serious: No
  Sender: FDA-Public Use
  Company Number: US-GILEAD-2012-0059509

PATIENT
  Age: 12 Year
  Sex: Female
  Weight: 45.4 kg

DRUGS (12)
  1. CAYSTON [Suspect]
     Indication: CYSTIC FIBROSIS
     Dosage: 75 MG, TID
     Route: 055
     Dates: start: 20120116
  2. CAYSTON [Suspect]
     Indication: PSEUDOMONAS INFECTION
  3. CIPROFLOXACIN [Concomitant]
     Dosage: UNK
     Dates: start: 20120726, end: 20120802
  4. AZITHROMYCIN [Concomitant]
     Dosage: UNK
     Dates: start: 20120627
  5. TOBRAMYCIN [Concomitant]
     Dosage: UNK
     Dates: start: 20120605
  6. SODIUM CHLORIDE [Concomitant]
     Dosage: UNK
     Route: 055
     Dates: start: 20120221
  7. CHOLECALCIFEROL [Concomitant]
     Dosage: UNK
     Dates: start: 20120114
  8. ALBUTEROL                          /00139501/ [Concomitant]
     Dosage: UNK
     Dates: start: 20111107
  9. PREVACID [Concomitant]
     Dosage: UNK
     Dates: start: 20110613
  10. PROVENTIL                          /00139501/ [Concomitant]
     Dosage: UNK
     Dates: start: 20110523
  11. PULMOZYME [Concomitant]
     Dosage: UNK
     Dates: start: 20100812
  12. ZYRTEC [Concomitant]
     Dosage: UNK
     Dates: start: 20110812

REACTIONS (1)
  - Cough [Unknown]
